FAERS Safety Report 6630512-1 (Version None)
Quarter: 2010Q1

REPORT INFORMATION
  Report Type: 
  Country: None (occurrence: None)
  Receive Date: 20100311
  Receipt Date: 20090626
  Transmission Date: 20100710
  Serious: No
  Sender: FDA-Public Use
  Company Number: US-BIOGENIDEC-2009BI019705

PATIENT
  Age: 22 Year
  Sex: Male

DRUGS (4)
  1. AVONEX [Suspect]
     Indication: MULTIPLE SCLEROSIS
     Route: 030
     Dates: start: 20090201, end: 20090301
  2. AVONEX [Suspect]
     Route: 030
     Dates: start: 20090301, end: 20090501
  3. AVONEX [Suspect]
     Route: 030
     Dates: start: 20090501
  4. LORCET-HD [Concomitant]
     Indication: NEURALGIA

REACTIONS (2)
  - NASOPHARYNGITIS [None]
  - NAUSEA [None]
